FAERS Safety Report 24122537 (Version 1)
Quarter: 2024Q3

REPORT INFORMATION
  Report Type: Report from Study
  Country: MX (occurrence: None)
  Receive Date: 20240723
  Receipt Date: 20240723
  Transmission Date: 20241017
  Serious: Yes (Other)
  Sender: ASTRAZENECA
  Company Number: 2019SF08959

PATIENT
  Age: 776 Month
  Sex: Female
  Weight: 60 kg

DRUGS (2)
  1. CRESTOR [Suspect]
     Active Substance: ROSUVASTATIN CALCIUM
     Indication: Blood cholesterol increased
     Route: 048
     Dates: start: 2018
  2. ESOMEPRAZOLE [Concomitant]
     Active Substance: ESOMEPRAZOLE
     Indication: Gastric ulcer
     Route: 048
     Dates: start: 20190601

REACTIONS (1)
  - Pain [Unknown]

NARRATIVE: CASE EVENT DATE: 20190501
